FAERS Safety Report 7335666-X (Version None)
Quarter: 2011Q1

REPORT INFORMATION
  Report Type: 
  Country: None (occurrence: None)
  Receive Date: 20110307
  Receipt Date: 20110228
  Transmission Date: 20110831
  Serious: Yes (Death, Hospitalization)
  Sender: FDA-Public Use
  Company Number: A0897694A

PATIENT
  Age: 52 Year
  Sex: Male

DRUGS (1)
  1. AVANDIA [Suspect]
     Route: 048
     Dates: start: 20000101, end: 20061018

REACTIONS (5)
  - CARDIO-RESPIRATORY ARREST [None]
  - INTESTINAL ISCHAEMIA [None]
  - SEPTIC SHOCK [None]
  - HYPOXIA [None]
  - ISCHAEMIC CARDIOMYOPATHY [None]
